FAERS Safety Report 9054341 (Version 1)
Quarter: 2013Q1

REPORT INFORMATION
  Report Type: Spontaneous
  Country: FR (occurrence: FR)
  Receive Date: 20130208
  Receipt Date: 20130208
  Transmission Date: 20140127
  Serious: Yes (Hospitalization)
  Sender: FDA-Public Use
  Company Number: FR-009507513-1302FRA001424

PATIENT
  Age: 75 None
  Sex: Male

DRUGS (15)
  1. CHIBRO-PROSCAR [Suspect]
     Indication: BENIGN PROSTATIC HYPERPLASIA
     Dosage: 5 MG, UNK
     Route: 048
     Dates: start: 20080613, end: 20080620
  2. ZYLORIC [Suspect]
     Indication: PLASMA CELL MYELOMA
     Dosage: 100 MG, QD
     Route: 048
     Dates: start: 20080522, end: 20080623
  3. ZYLORIC [Suspect]
     Dosage: 300 MG, QD
     Route: 048
     Dates: start: 20080702, end: 20080705
  4. INEXIUM [Suspect]
     Dosage: 40 MG, QD
     Route: 048
     Dates: start: 20080521, end: 20080701
  5. THALIDOMIDE [Suspect]
     Indication: PLASMA CELL MYELOMA
     Dosage: 100 MG, QD
     Route: 048
     Dates: start: 20080609, end: 20080627
  6. THALIDOMIDE [Suspect]
     Dosage: 100 MG, QD
     Route: 048
     Dates: start: 20080701, end: 20080704
  7. THALIDOMIDE [Suspect]
     Dosage: 1 DF, QD
     Route: 048
     Dates: start: 20080908, end: 20080919
  8. OROKEN [Concomitant]
     Indication: PROPHYLAXIS URINARY TRACT INFECTION
     Dosage: UNK
     Route: 048
     Dates: start: 20080609, end: 20080704
  9. MECIR LP [Concomitant]
     Indication: BENIGN PROSTATIC HYPERPLASIA
     Dosage: 0.4 MG, QD
     Route: 048
     Dates: start: 20080613, end: 20080706
  10. OFLOCET (OFLOXACIN) [Concomitant]
     Indication: URINARY TRACT INFECTION
     Dosage: UNK
     Dates: start: 20080618, end: 20080623
  11. ARANESP (DARBEPOETIN ALFA) [Concomitant]
     Indication: PLASMA CELL MYELOMA
     Dosage: 60 MICROGRAM, QW
     Dates: start: 20080522
  12. EPREX [Concomitant]
     Indication: PLASMA CELL MYELOMA
  13. ASPEGIC [Concomitant]
     Indication: PLASMA CELL MYELOMA
     Dosage: UNK
     Dates: start: 20080609
  14. ROCEPHIN [Concomitant]
     Indication: URINARY TRACT INFECTION
     Dosage: UNK
     Dates: start: 20080616, end: 20080620
  15. STILNOX [Concomitant]

REACTIONS (2)
  - Drug reaction with eosinophilia and systemic symptoms [Recovering/Resolving]
  - Varicella [Recovering/Resolving]
